FAERS Safety Report 25571958 (Version 1)
Quarter: 2025Q3

REPORT INFORMATION
  Report Type: Spontaneous
  Country: EU (occurrence: EU)
  Receive Date: 20250717
  Receipt Date: 20250717
  Transmission Date: 20251020
  Serious: Yes (Other)
  Sender: AUROBINDO
  Company Number: EU-AEMPS-1718864

PATIENT
  Sex: Male

DRUGS (3)
  1. DIAZEPAM [Interacting]
     Active Substance: DIAZEPAM
     Indication: Product used for unknown indication
     Dosage: UNK UNK, ONCE A DAY
     Route: 048
     Dates: start: 202505, end: 202505
  2. CAPTOPRIL [Interacting]
     Active Substance: CAPTOPRIL
     Indication: Product used for unknown indication
     Dosage: UNK UNK, ONCE A DAY
     Route: 048
     Dates: start: 202505, end: 202505
  3. Nolotil [Concomitant]
     Indication: Abdominal pain
     Route: 048
     Dates: start: 202505, end: 202505

REACTIONS (3)
  - Hypotension [Recovering/Resolving]
  - Accident [Recovered/Resolved]
  - Wrong product administered [Recovered/Resolved]

NARRATIVE: CASE EVENT DATE: 20250501
